FAERS Safety Report 9778287 (Version 1)
Quarter: 2013Q4

REPORT INFORMATION
  Report Type: Spontaneous
  Country: NO (occurrence: NO)
  Receive Date: 20131223
  Receipt Date: 20131223
  Transmission Date: 20140711
  Serious: Yes (Hospitalization)
  Sender: FDA-Public Use
  Company Number: NO-JNJFOC-20131211920

PATIENT
  Age: 48 Year
  Sex: Female
  Weight: 123 kg

DRUGS (5)
  1. XARELTO [Suspect]
     Indication: EMBOLISM VENOUS
     Route: 048
     Dates: start: 201305, end: 20131115
  2. XARELTO [Suspect]
     Indication: DEEP VEIN THROMBOSIS
     Route: 048
     Dates: start: 201305, end: 20131115
  3. CIPRALEX [Concomitant]
     Route: 048
  4. RIVOTRIL [Concomitant]
     Route: 048
  5. LAMICTAL [Concomitant]
     Route: 048

REACTIONS (3)
  - Drug ineffective [Unknown]
  - Dyspnoea exertional [Recovering/Resolving]
  - Pulmonary embolism [Recovering/Resolving]
